FAERS Safety Report 10407518 (Version 1)
Quarter: 2014Q3

REPORT INFORMATION
  Report Type: Spontaneous
  Country: BR (occurrence: BR)
  Receive Date: 20140825
  Receipt Date: 20140825
  Transmission Date: 20150326
  Serious: Yes (Other)
  Sender: FDA-Public Use
  Company Number: BR-PFIZER INC-2014231244

PATIENT
  Age: 76 Year
  Sex: Female
  Weight: 62 kg

DRUGS (2)
  1. LACRIMA PLUS [Concomitant]
     Indication: INTRAOCULAR PRESSURE INCREASED
  2. XALATAN [Suspect]
     Active Substance: LATANOPROST
     Indication: INTRAOCULAR PRESSURE INCREASED
     Dosage: 1 DROP IN EACH EYE (3 UG), 1X/DAY
     Route: 047

REACTIONS (5)
  - Cataract [Unknown]
  - Eye allergy [Unknown]
  - Dry eye [Unknown]
  - Skin discolouration [Unknown]
  - Glaucoma [Unknown]

NARRATIVE: CASE EVENT DATE: 2014
